FAERS Safety Report 10440581 (Version 1)
Quarter: 2014Q3

REPORT INFORMATION
  Report Type: Spontaneous
  Country: US (occurrence: None)
  Receive Date: 20140908
  Receipt Date: 20140908
  Transmission Date: 20150326
  Serious: Yes (Other)
  Sender: FDA-Public Use
  Company Number: None

PATIENT
  Age: 30 Year
  Sex: Male
  Weight: 73.94 kg

DRUGS (1)
  1. NALTREXONE [Suspect]
     Active Substance: NALTREXONE
     Indication: SUBSTANCE ABUSE
     Route: 048
     Dates: start: 20140818, end: 20140822

REACTIONS (1)
  - Priapism [None]

NARRATIVE: CASE EVENT DATE: 20140828
